FAERS Safety Report 8515389-1 (Version None)
Quarter: 2012Q3

REPORT INFORMATION
  Report Type: 
  Country: None (occurrence: None)
  Receive Date: 20120705
  Receipt Date: 20120620
  Transmission Date: 20120928
  Serious: Yes (Other)
  Sender: FDA-Public Use
  Company Number: 1325504

PATIENT
  Age: 19 Year
  Sex: Male

DRUGS (6)
  1. VINCRISTINE SULFATE [Suspect]
     Indication: EWING'S SARCOMA
     Dosage: 1.5
  2. DACTINOMYCIN [Suspect]
     Indication: EWING'S SARCOMA
     Dosage: 0.5 MG
  3. ETOPOSIDE [Suspect]
     Indication: EWING'S SARCOMA
     Dosage: 150 MG/M^2
  4. DOXORUBICIN HCL [Suspect]
     Indication: EWING'S SARCOMA
     Dosage: 30 MG/M^2
  5. IFOSFAMIDE [Suspect]
     Indication: EWING'S SARCOMA
     Dosage: 2000 MG/M^2
  6. (THERAPEUTIC RADIOPHARMACEUTICALS) [Concomitant]

REACTIONS (2)
  - MARROW HYPERPLASIA [None]
  - ACUTE LYMPHOCYTIC LEUKAEMIA [None]
